FAERS Safety Report 5139685-3 (Version None)
Quarter: 2006Q4

REPORT INFORMATION
  Report Type: 
  Country: None (occurrence: None)
  Receive Date: 20061024
  Receipt Date: 20061006
  Transmission Date: 20070319
  Serious: Yes (Life-Threatening, Hospitalization)
  Sender: FDA-Public Use
  Company Number: DSA_28840_2006

PATIENT
  Age: 43 Year
  Sex: Female

DRUGS (1)
  1. RENIVACE [Suspect]
     Dosage: 100 MG ONCE PO
     Route: 048
     Dates: start: 20061006, end: 20061006

REACTIONS (5)
  - BLOOD GLUCOSE FLUCTUATION [None]
  - DEPRESSED LEVEL OF CONSCIOUSNESS [None]
  - INTENTIONAL OVERDOSE [None]
  - SELF-MEDICATION [None]
  - SUICIDE ATTEMPT [None]
